FAERS Safety Report 4885675-5 (Version None)
Quarter: 2006Q1

REPORT INFORMATION
  Report Type: 
  Country: None (occurrence: None)
  Receive Date: 20060119
  Receipt Date: 20060109
  Transmission Date: 20060701
  Serious: Yes (Hospitalization)
  Sender: FDA-Public Use
  Company Number: AU-ABBOTT-06P-008-0321769-00

PATIENT
  Sex: Male
  Weight: 50 kg

DRUGS (7)
  1. AKINETON [Suspect]
     Indication: UNEVALUABLE EVENT
     Route: 048
     Dates: start: 20050417, end: 20050421
  2. SALBUTAMOL [Concomitant]
     Indication: INHALATION THERAPY
     Route: 055
  3. IPRATROPIUM BROMIDE [Concomitant]
     Indication: DRUG USE FOR UNKNOWN INDICATION
  4. FEFOL [Concomitant]
     Indication: DRUG USE FOR UNKNOWN INDICATION
  5. GABEXATE MESILATE [Concomitant]
     Indication: OESOPHAGEAL DISORDER
  6. CEPHALEXIN MONOHYDRATE [Concomitant]
     Indication: DRUG USE FOR UNKNOWN INDICATION
  7. LEVOTHYROXINE SODIUM [Concomitant]
     Indication: HYPOTHYROIDISM

REACTIONS (4)
  - AGITATION [None]
  - CONFUSIONAL STATE [None]
  - DELIRIUM [None]
  - HALLUCINATION [None]
